FAERS Safety Report 7089950-8 (Version None)
Quarter: 2010Q4

REPORT INFORMATION
  Report Type: 
  Country: None (occurrence: None)
  Receive Date: 20101108
  Receipt Date: 20101025
  Transmission Date: 20110411
  Serious: Yes (Hospitalization)
  Sender: FDA-Public Use
  Company Number: FR-AMGEN-QUU443677

PATIENT

DRUGS (5)
  1. MIMPARA [Suspect]
     Indication: HYPERPARATHYROIDISM SECONDARY
     Dosage: UNK UNK, UNK
     Dates: start: 20100924, end: 20100930
  2. AMLODIPINE BESYLATE [Concomitant]
     Dosage: UNK UNK, UNK
     Dates: start: 20100923, end: 20100930
  3. AZATHIOPRINE [Concomitant]
     Dosage: UNK UNK, UNK
     Dates: start: 20100924, end: 20100926
  4. AMOXICILLIN TRIHYDRATE [Concomitant]
     Dosage: UNK UNK, UNK
     Dates: start: 20100927
  5. METRONIDAZOLE [Concomitant]
     Dosage: UNK UNK, UNK
     Dates: start: 20100927

REACTIONS (1)
  - NEUTROPENIA [None]
